FAERS Safety Report 6570675-X (Version None)
Quarter: 2010Q1

REPORT INFORMATION
  Report Type: 
  Country: None (occurrence: None)
  Receive Date: 20100204
  Receipt Date: 20100202
  Transmission Date: 20100710
  Serious: Yes (Other)
  Sender: FDA-Public Use
  Company Number: A0839745A

PATIENT
  Age: 55 Year
  Sex: Female

DRUGS (5)
  1. VALTREX [Suspect]
     Indication: GENITAL HERPES
     Dosage: 1000MG PER DAY
     Route: 048
     Dates: start: 20070101
  2. MULTI-VITAMIN [Concomitant]
  3. LYSINE [Concomitant]
  4. CALCIUM [Concomitant]
  5. VITAMIN D [Concomitant]

REACTIONS (5)
  - DRUG INEFFECTIVE [None]
  - ERYTHEMA MULTIFORME [None]
  - ILL-DEFINED DISORDER [None]
  - PRODUCT QUALITY ISSUE [None]
  - TREATMENT NONCOMPLIANCE [None]
